FAERS Safety Report 20451751 (Version 1)
Quarter: 2022Q1

REPORT INFORMATION
  Report Type: Spontaneous
  Country: IT (occurrence: IT)
  Receive Date: 20220209
  Receipt Date: 20220209
  Transmission Date: 20220424
  Serious: Yes (Hospitalization)
  Sender: FDA-Public Use
  Company Number: IT-Fresenius Kabi-FK202200923

PATIENT
  Age: 61 Year
  Sex: Male

DRUGS (9)
  1. AZITHROMYCIN [Suspect]
     Active Substance: AZITHROMYCIN
     Indication: COVID-19 pneumonia
     Route: 065
     Dates: start: 202102
  2. AZITHROMYCIN [Suspect]
     Active Substance: AZITHROMYCIN
     Indication: Product use in unapproved indication
  3. DEXAMETHASONE [Suspect]
     Active Substance: DEXAMETHASONE
     Indication: COVID-19 pneumonia
     Dosage: MINIMUM DOSAGE
     Route: 042
     Dates: start: 202102, end: 202102
  4. DEXAMETHASONE [Suspect]
     Active Substance: DEXAMETHASONE
     Dosage: MAXIMUM DOSAGE
     Route: 042
     Dates: start: 202102, end: 202102
  5. REMDESIVIR [Concomitant]
     Active Substance: REMDESIVIR
     Indication: COVID-19 pneumonia
     Dates: start: 202102
  6. CEFTRIAXONE [Concomitant]
     Active Substance: CEFTRIAXONE
     Indication: COVID-19 pneumonia
     Dates: start: 202102
  7. METFORMIN [Concomitant]
     Active Substance: METFORMIN HYDROCHLORIDE
     Indication: Diabetes mellitus
  8. BISOPROLOL [Concomitant]
     Active Substance: BISOPROLOL
     Indication: Hypertension
  9. ENOXAPARIN [Concomitant]
     Active Substance: ENOXAPARIN
     Indication: Jugular vein thrombosis
     Route: 058
     Dates: start: 202102, end: 202103

REACTIONS (2)
  - Kaposi^s sarcoma [Recovering/Resolving]
  - Product use in unapproved indication [Unknown]

NARRATIVE: CASE EVENT DATE: 20210301
